FAERS Safety Report 15643906 (Version 1)
Quarter: 2018Q4

REPORT INFORMATION
  Report Type: Spontaneous
  Country: CN (occurrence: CN)
  Receive Date: 20181121
  Receipt Date: 20181121
  Transmission Date: 20190205
  Serious: Yes (Hospitalization)
  Sender: FDA-Public Use
  Company Number: CN-ANIPHARMA-2018-CN-000194

PATIENT
  Age: 40 Year
  Sex: Female

DRUGS (3)
  1. IBUPROFEN (NON-SPECIFIC) [Suspect]
     Active Substance: IBUPROFEN
     Indication: DYSMENORRHOEA
     Dosage: 300 MG TWICE DAILY; 2 TO 3 DAYS PER MONTH
     Route: 048
  2. METFORMIN [Concomitant]
     Active Substance: METFORMIN HYDROCHLORIDE
     Dosage: 500 MG 3 TIMES DAILY
     Route: 048
  3. ACARBOSE. [Concomitant]
     Active Substance: ACARBOSE
     Dosage: 50 MG 3 TIMES DAILY
     Route: 048

REACTIONS (4)
  - Cholestasis [Unknown]
  - Hyperlipidaemia [Unknown]
  - Vanishing bile duct syndrome [Unknown]
  - Liver injury [Unknown]
